FAERS Safety Report 8578212-5 (Version None)
Quarter: 2012Q3

REPORT INFORMATION
  Report Type: 
  Country: None (occurrence: None)
  Receive Date: 20120808
  Receipt Date: 20120806
  Transmission Date: 20120928
  Serious: No
  Sender: FDA-Public Use
  Company Number: US-PFIZER INC-2012152579

PATIENT
  Age: 61 Year
  Sex: Female
  Weight: 82.54 kg

DRUGS (2)
  1. CHANTIX [Suspect]
     Indication: SMOKING CESSATION THERAPY
     Dosage: 0.5 MG, 1X/DAY
     Route: 048
     Dates: start: 20091118
  2. CHANTIX [Suspect]
     Dosage: UNK
     Route: 048

REACTIONS (2)
  - NAUSEA [None]
  - DISCOMFORT [None]
